FAERS Safety Report 6148103-8 (Version None)
Quarter: 2009Q2

REPORT INFORMATION
  Report Type: 
  Country: None (occurrence: None)
  Receive Date: 20090408
  Receipt Date: 20090318
  Transmission Date: 20091009
  Serious: No
  Sender: FDA-Public Use
  Company Number: US-BAYER-200915850NA

PATIENT
  Sex: Female

DRUGS (1)
  1. MIRENA [Suspect]
     Indication: CONTRACEPTION
     Route: 015
     Dates: start: 20050501, end: 20090309

REACTIONS (5)
  - GENITAL HAEMORRHAGE [None]
  - MENSTRUATION IRREGULAR [None]
  - STAPHYLOCOCCAL INFECTION [None]
  - VAGINAL DISCHARGE [None]
  - VULVOVAGINAL PAIN [None]
